FAERS Safety Report 8777067 (Version 2)
Quarter: 2013Q3

REPORT INFORMATION
  Report Type: Spontaneous
  Country: IT (occurrence: IT)
  Receive Date: 20120911
  Receipt Date: 20130911
  Transmission Date: 20140515
  Serious: Yes (Life-Threatening)
  Sender: FDA-Public Use
  Company Number: IT-BRISTOL-MYERS SQUIBB COMPANY-16935546

PATIENT
  Age: 68 Year
  Sex: Male

DRUGS (2)
  1. ONGLYZA TABS 5 MG [Suspect]
     Route: 048
     Dates: start: 20101206, end: 20120110
  2. METFORMINA [Concomitant]
     Dates: start: 20040101, end: 20120110

REACTIONS (1)
  - Ischaemic stroke [Not Recovered/Not Resolved]
